FAERS Safety Report 8138148-0 (Version None)
Quarter: 2012Q1

REPORT INFORMATION
  Report Type: 
  Country: None (occurrence: None)
  Receive Date: 20120215
  Receipt Date: 20120124
  Transmission Date: 20120608
  Serious: Yes (Hospitalization)
  Sender: FDA-Public Use
  Company Number: IT-ABBOTT-12P-083-0889521-00

PATIENT
  Sex: Female

DRUGS (1)
  1. CLARITHROMYCIN [Suspect]
     Indication: TRACHEITIS
     Dosage: 1 UNIT TOTAL
     Route: 048
     Dates: start: 20120104, end: 20120104

REACTIONS (1)
  - ERYTHEMA [None]
